FAERS Safety Report 4376686-7 (Version None)
Quarter: 2004Q2

REPORT INFORMATION
  Report Type: 
  Country: None (occurrence: None)
  Receive Date: 20040608
  Receipt Date: 20040527
  Transmission Date: 20050107
  Serious: Yes (Hospitalization)
  Sender: FDA-Public Use
  Company Number: 04P-163-0262168-00

PATIENT
  Age: 74 Year
  Sex: Female
  Weight: 58.9676 kg

DRUGS (7)
  1. SYNTHROID [Suspect]
     Indication: HYPOTHYROIDISM
     Dosage: SEE IMAGE
     Route: 048
     Dates: start: 19780101, end: 20040405
  2. SYNTHROID [Suspect]
     Indication: HYPOTHYROIDISM
     Dosage: SEE IMAGE
     Route: 048
     Dates: start: 20040406, end: 20040507
  3. SYNTHROID [Suspect]
     Indication: HYPOTHYROIDISM
     Dosage: SEE IMAGE
     Route: 048
     Dates: start: 20040508
  4. QUINAPRIL HYDROCHLORIDE [Concomitant]
  5. TOCOPHEROL CONCENTRATE CAP [Concomitant]
  6. CYANOCOBALAMIN [Concomitant]
  7. PROGESTERONE [Concomitant]

REACTIONS (10)
  - ASTHENIA [None]
  - BLOOD THYROID STIMULATING HORMONE DECREASED [None]
  - BLOOD THYROID STIMULATING HORMONE INCREASED [None]
  - DIZZINESS [None]
  - FALL [None]
  - FATIGUE [None]
  - INSOMNIA [None]
  - PATELLA FRACTURE [None]
  - UPPER LIMB FRACTURE [None]
  - VISUAL ACUITY REDUCED [None]
